FAERS Safety Report 25267065 (Version 2)
Quarter: 2025Q2

REPORT INFORMATION
  Report Type: Spontaneous
  Country: ES (occurrence: ES)
  Receive Date: 20250505
  Receipt Date: 20250514
  Transmission Date: 20250717
  Serious: Yes (Hospitalization)
  Sender: CELLTRION
  Company Number: ES-ROCHE-10000117908

PATIENT

DRUGS (9)
  1. ADALIMUMAB [Suspect]
     Active Substance: ADALIMUMAB
     Indication: Gene therapy
     Route: 058
  2. METHOTREXATE SODIUM [Suspect]
     Active Substance: METHOTREXATE SODIUM
     Indication: Gene therapy
     Route: 065
  3. TOCILIZUMAB [Suspect]
     Active Substance: TOCILIZUMAB
     Indication: Interleukin therapy
     Route: 065
  4. ANAKINRA [Suspect]
     Active Substance: ANAKINRA
     Indication: Gene therapy
     Route: 065
  5. ETANERCEPT [Concomitant]
     Active Substance: ETANERCEPT
  6. METHOTREXATE [Concomitant]
     Active Substance: METHOTREXATE
  7. METHYLPREDNISOLONE [Concomitant]
     Active Substance: METHYLPREDNISOLONE
     Route: 042
  8. PREDNISONE [Concomitant]
     Active Substance: PREDNISONE
  9. TOFACITINIB [Concomitant]
     Active Substance: TOFACITINIB

REACTIONS (4)
  - Disease progression [Unknown]
  - Multiple-drug resistance [Unknown]
  - Inflammation [Unknown]
  - Product use in unapproved indication [Unknown]
